FAERS Safety Report 20712712 (Version 2)
Quarter: 2022Q2

REPORT INFORMATION
  Report Type: Spontaneous
  Country: US (occurrence: US)
  Receive Date: 20220415
  Receipt Date: 20220419
  Transmission Date: 20220720
  Serious: No
  Sender: FDA-Public Use
  Company Number: US-ORGANON-O2203USA002301

PATIENT
  Age: 20 Year
  Sex: Female
  Weight: 83.37 kg

DRUGS (2)
  1. NEXPLANON [Suspect]
     Active Substance: ETONOGESTREL
     Indication: Contraception
     Dosage: 1 DOSAGE FORM (IMPLANT), LEFT ARM
     Route: 059
     Dates: start: 20181025, end: 20210930
  2. NEXPLANON [Suspect]
     Active Substance: ETONOGESTREL
     Indication: Contraception
     Dosage: 1 IMPLANT, IN LEFT ARM
     Route: 059
     Dates: start: 20210930

REACTIONS (3)
  - Implant site pruritus [Recovered/Resolved]
  - Rash macular [Recovered/Resolved]
  - Pruritus [Not Recovered/Not Resolved]

NARRATIVE: CASE EVENT DATE: 20220318
